FAERS Safety Report 15844112 (Version 1)
Quarter: 2019Q1

REPORT INFORMATION
  Report Type: Spontaneous
  Country: IN (occurrence: IN)
  Receive Date: 20190118
  Receipt Date: 20190118
  Transmission Date: 20190417
  Serious: Yes (Other)
  Sender: FDA-Public Use
  Company Number: IN-ALLERGAN-1901502US

PATIENT
  Age: 5 Year
  Sex: Male

DRUGS (7)
  1. METHOTREXATE. [Concomitant]
     Active Substance: METHOTREXATE
     Indication: IMMUNOSUPPRESSION
     Dosage: 15 MG, Q WEEK
     Route: 058
  2. MOXIFLOXACIN. [Concomitant]
     Active Substance: MOXIFLOXACIN
     Indication: POSTOPERATIVE CARE
     Dosage: UNKNOWN, 6 TIMES A DAY
     Route: 061
  3. BETAMETHASONE W/NEOMYCIN [Concomitant]
     Indication: POSTOPERATIVE CARE
     Dosage: INITIALLY 10-12 TIMES PER DAY, THEN TAPERED
     Route: 061
  4. OZURDEX [Suspect]
     Active Substance: DEXAMETHASONE
     Indication: AUTOIMMUNE UVEITIS
     Dosage: 0.7 MG, SINGLE
     Route: 031
  5. ATROPINE SULFATE. [Concomitant]
     Active Substance: ATROPINE SULFATE
     Indication: POSTOPERATIVE CARE
     Dosage: UNK, TID
     Route: 061
  6. TRYPAN BLUE [Concomitant]
     Active Substance: TRYPAN BLUE
     Indication: LENS EXTRACTION
     Dosage: UNK
     Route: 031
  7. ANESTHETIC [Concomitant]
     Active Substance: BENZOCAINE\LIDOCAINE HYDROCHLORIDE
     Indication: GENERAL ANAESTHESIA
     Dosage: UNK

REACTIONS (3)
  - Visual impairment [Unknown]
  - Off label use [Unknown]
  - Macular fibrosis [Unknown]
